FAERS Safety Report 9173883 (Version 1)
Quarter: 2013Q1

REPORT INFORMATION
  Report Type: Spontaneous
  Country: US (occurrence: None)
  Receive Date: 20130318
  Receipt Date: 20130318
  Transmission Date: 20140127
  Serious: No
  Sender: FDA-Public Use
  Company Number: None

PATIENT
  Age: 54 Year
  Sex: Female
  Weight: 68.04 kg

DRUGS (1)
  1. ORECEA [Suspect]
     Indication: ROSACEA
     Dates: start: 20130301, end: 20130312

REACTIONS (2)
  - Abdominal pain upper [None]
  - Blood pressure increased [None]
